FAERS Safety Report 19569960 (Version 1)
Quarter: 2021Q3

REPORT INFORMATION
  Report Type: Spontaneous
  Country: JP (occurrence: JP)
  Receive Date: 20210715
  Receipt Date: 20210715
  Transmission Date: 20211014
  Serious: Yes (Other)
  Sender: FDA-Public Use
  Company Number: JP-PFIZER INC-2021825914

PATIENT
  Age: 7 Year
  Sex: Male

DRUGS (4)
  1. ZARONTIN [Suspect]
     Active Substance: ETHOSUXIMIDE
     Indication: MYOCLONIC EPILEPSY
     Dosage: 40 MG/KG, DAILY
  2. PHENOBARBITAL. [Concomitant]
     Active Substance: PHENOBARBITAL
     Dosage: UNK
  3. ZARONTIN [Suspect]
     Active Substance: ETHOSUXIMIDE
     Dosage: 30 MG/KG, DAILY
  4. SODIUM VALPROATE [Suspect]
     Active Substance: VALPROATE SODIUM
     Indication: MYOCLONIC EPILEPSY
     Dosage: 35 MG/KG, DAILY

REACTIONS (2)
  - Drug ineffective [Unknown]
  - Pancreatitis [Unknown]
